FAERS Safety Report 11477285 (Version 2)
Quarter: 2016Q1

REPORT INFORMATION
  Report Type: Spontaneous
  Country: US (occurrence: US)
  Receive Date: 20150909
  Receipt Date: 20160303
  Transmission Date: 20160525
  Serious: Yes (Life-Threatening, Hospitalization)
  Sender: FDA-Public Use
  Company Number: US-BAYER-2015-418839

PATIENT
  Age: 23 Year
  Sex: Female
  Weight: 61.22 kg

DRUGS (1)
  1. MIRENA [Suspect]
     Active Substance: LEVONORGESTREL
     Indication: CONTRACEPTION
     Dosage: 20 MCG/24HR, CONT
     Route: 015
     Dates: start: 20091021, end: 20111021

REACTIONS (8)
  - Injury [None]
  - General physical health deterioration [None]
  - Abdominal pain [None]
  - Scar [None]
  - Uterine perforation [None]
  - Infection [None]
  - Procedural pain [None]
  - Device issue [None]

NARRATIVE: CASE EVENT DATE: 200912
